FAERS Safety Report 19934312 (Version 1)
Quarter: 2021Q4

REPORT INFORMATION
  Report Type: Spontaneous
  Country: IN (occurrence: IN)
  Receive Date: 20211008
  Receipt Date: 20211008
  Transmission Date: 20220303
  Serious: Yes (Other)
  Sender: FDA-Public Use
  Company Number: IN-JUBILANT CADISTA PHARMACEUTICALS-2021JUB00310

PATIENT
  Age: 72 Year
  Sex: Male

DRUGS (2)
  1. MYCOPHENOLATE MOFETIL [Suspect]
     Active Substance: MYCOPHENOLATE MOFETIL
     Indication: Chronic inflammatory demyelinating polyradiculoneuropathy
     Route: 065
  2. UNSPECIFIED INGREDIENT [Concomitant]
     Active Substance: UNSPECIFIED INGREDIENT
     Indication: Chronic inflammatory demyelinating polyradiculoneuropathy
     Route: 065

REACTIONS (3)
  - Cryptococcosis [Recovering/Resolving]
  - Lacunar infarction [Recovering/Resolving]
  - Pseudocyst [Recovering/Resolving]
